FAERS Safety Report 4677406-9 (Version None)
Quarter: 2005Q2

REPORT INFORMATION
  Report Type: 
  Country: None (occurrence: None)
  Receive Date: 20050527
  Receipt Date: 20050527
  Transmission Date: 20051028
  Serious: Yes (Hospitalization)
  Sender: FDA-Public Use
  Company Number: None

PATIENT
  Age: 75 Year
  Sex: Male
  Weight: 69 kg

DRUGS (2)
  1. COUMADIN [Suspect]
     Indication: MITRAL VALVE REPLACEMENT
     Dosage: 5MG/2.5MG  TUTHSA/R OW ORAL
     Route: 048
     Dates: start: 19970101, end: 20050526
  2. AMIODARONE HYDROCHLORIDE [Concomitant]

REACTIONS (4)
  - DECREASED APPETITE [None]
  - DEHYDRATION [None]
  - HAEMOPTYSIS [None]
  - PNEUMONIA [None]
